FAERS Safety Report 5672661-0 (Version None)
Quarter: 2008Q1

REPORT INFORMATION
  Report Type: 
  Country: None (occurrence: None)
  Receive Date: 20080319
  Receipt Date: 20070213
  Transmission Date: 20080703
  Serious: Yes (Hospitalization)
  Sender: FDA-Public Use
  Company Number: US-KINGPHARMUSA00001-K200700171

PATIENT

DRUGS (3)
  1. ALTACE [Suspect]
     Dosage: 2.5 MG, QD
  2. LETROZOLE [Suspect]
     Indication: BREAST CANCER METASTATIC
     Dosage: 2.5 MG, QD
     Route: 048
     Dates: start: 20060310
  3. BLINDED TRIAL MEDICATION [Suspect]
     Indication: BREAST CANCER METASTATIC
     Dosage: UNK, QD
     Route: 048
     Dates: start: 20060310

REACTIONS (1)
  - SYNCOPE [None]
